FAERS Safety Report 12388349 (Version 1)
Quarter: 2016Q2

REPORT INFORMATION
  Report Type: Spontaneous
  Country: US (occurrence: None)
  Receive Date: 20160519
  Receipt Date: 20160519
  Transmission Date: 20160815
  Serious: No
  Sender: FDA-Public Use
  Company Number: None

PATIENT
  Sex: Female

DRUGS (1)
  1. OMNITROPE [Suspect]
     Active Substance: SOMATROPIN
     Indication: BODY HEIGHT BELOW NORMAL
     Route: 058
     Dates: start: 20160429, end: 20160506

REACTIONS (4)
  - Urticaria [None]
  - Erythema [None]
  - Drug hypersensitivity [None]
  - Pruritus [None]

NARRATIVE: CASE EVENT DATE: 20160429
